FAERS Safety Report 9541514 (Version 1)
Quarter: 2013Q3

REPORT INFORMATION
  Report Type: Spontaneous
  Country: CA (occurrence: CA)
  Receive Date: 20130923
  Receipt Date: 20130923
  Transmission Date: 20140515
  Serious: Yes (Hospitalization, Other)
  Sender: FDA-Public Use
  Company Number: CA-ROCHE-1278809

PATIENT
  Sex: Female

DRUGS (5)
  1. XOLAIR [Suspect]
     Indication: PRODUCT USED FOR UNKNOWN INDICATION
     Route: 058
     Dates: start: 20130806
  2. REACTINE (CANADA) [Concomitant]
  3. VENTOLIN [Concomitant]
  4. RITALIN [Concomitant]
  5. NASONEX [Concomitant]

REACTIONS (5)
  - Nausea [Recovering/Resolving]
  - Dizziness [Recovering/Resolving]
  - Headache [Recovering/Resolving]
  - Labyrinthitis [Unknown]
  - Sinusitis [Unknown]
